FAERS Safety Report 12159106 (Version 1)
Quarter: 2016Q1

REPORT INFORMATION
  Report Type: Spontaneous
  Country: FR (occurrence: FR)
  Receive Date: 20160308
  Receipt Date: 20160308
  Transmission Date: 20160526
  Serious: Yes (Hospitalization, Other)
  Sender: FDA-Public Use
  Company Number: FR-UCBSA-2016007775

PATIENT
  Age: 28 Year
  Sex: Male

DRUGS (2)
  1. KEPPRA [Suspect]
     Active Substance: LEVETIRACETAM
     Indication: EPILEPSY
     Dosage: UNK
  2. KEPPRA [Suspect]
     Active Substance: LEVETIRACETAM
     Dosage: 65 DF, TOTAL
     Route: 048
     Dates: start: 20160122, end: 20160122

REACTIONS (4)
  - Intentional overdose [Unknown]
  - Suicidal ideation [Unknown]
  - Vomiting [Recovered/Resolved]
  - Thymus disorder [Unknown]

NARRATIVE: CASE EVENT DATE: 2015
